FAERS Safety Report 6864613-X (Version None)
Quarter: 2010Q3

REPORT INFORMATION
  Report Type: 
  Country: None (occurrence: None)
  Receive Date: 20100721
  Receipt Date: 20080331
  Transmission Date: 20110219
  Serious: No
  Sender: FDA-Public Use
  Company Number: US-PFIZER INC-2008028807

PATIENT
  Sex: Female
  Weight: 65.9 kg

DRUGS (3)
  1. CHANTIX [Suspect]
     Indication: SMOKING CESSATION THERAPY
     Dates: start: 20080315, end: 20080330
  2. ANTIDEPRESSANTS [Concomitant]
  3. DRUG, UNSPECIFIED [Concomitant]
     Indication: AUTOIMMUNE THYROIDITIS

REACTIONS (4)
  - ANXIETY [None]
  - IRRITABILITY [None]
  - MOOD SWINGS [None]
  - NAUSEA [None]
